FAERS Safety Report 10120806 (Version 1)
Quarter: 2014Q2

REPORT INFORMATION
  Report Type: Report from Study
  Country: AU (occurrence: AU)
  Receive Date: 20140425
  Receipt Date: 20140425
  Transmission Date: 20141212
  Serious: Yes (Hospitalization)
  Sender: FDA-Public Use
  Company Number: AU-BRISTOL-MYERS SQUIBB COMPANY-20651501

PATIENT
  Age: 62 Year
  Sex: Female

DRUGS (6)
  1. ORENCIA [Suspect]
     Indication: RHEUMATOID ARTHRITIS
     Route: 042
  2. ZOLOFT [Concomitant]
  3. METHOTREXATE [Concomitant]
  4. PANADOL [Concomitant]
  5. LEUCOVORIN [Concomitant]
  6. SERC [Concomitant]

REACTIONS (1)
  - Autoimmune thyroiditis [Unknown]
